FAERS Safety Report 21335996 (Version 6)
Quarter: 2022Q4

REPORT INFORMATION
  Report Type: Report from Study
  Country: FR (occurrence: None)
  Receive Date: 20220915
  Receipt Date: 20221014
  Transmission Date: 20230112
  Serious: Yes (Death, Life-Threatening, Hospitalization)
  Sender: FDA-Public Use
  Company Number: FR-ROCHE-3164691

PATIENT
  Age: 60 Year
  Sex: Female
  Weight: 103 kg

DRUGS (17)
  1. GLOFITAMAB [Suspect]
     Active Substance: GLOFITAMAB
     Indication: B-cell lymphoma
     Dosage: START AND END DATE OF MOST RECENT DOSE (30 MG) OF STUDY DRUG PRIOR TO SAE: 18/JUL/2022
     Route: 042
     Dates: start: 20220209
  2. OBINUTUZUMAB [Suspect]
     Active Substance: OBINUTUZUMAB
     Indication: B-cell lymphoma
     Dosage: START AND END DATE OF MOST RECENT DOSE OF STUDY DRUG PRIOR TO AE AND SAE: 01/FEB/2022 AT 1000 MG
     Route: 042
     Dates: start: 20220201
  3. FLUDEOXYGLUCOSE F-18 [Suspect]
     Active Substance: FLUDEOXYGLUCOSE F-18
     Indication: B-cell lymphoma
     Dosage: START AND END DATE OF MOST RECENT DOSE OF STUDY DRUG PRIOR TO AE AND SAE: 10/MAY/2022
     Route: 042
     Dates: start: 20220127
  4. VERAPAMIL [Concomitant]
     Active Substance: VERAPAMIL HYDROCHLORIDE
     Indication: Hypertension
     Route: 048
  5. VILDAGLIPTIN [Concomitant]
     Active Substance: VILDAGLIPTIN
     Indication: Diabetes mellitus
     Route: 048
  6. BACTRIM [Concomitant]
     Active Substance: SULFAMETHOXAZOLE\TRIMETHOPRIM
     Indication: Infection prophylaxis
     Route: 048
     Dates: start: 20220201
  7. VALACYCLOVIR HYDROCHLORIDE [Concomitant]
     Active Substance: VALACYCLOVIR HYDROCHLORIDE
     Indication: Infection prophylaxis
     Route: 048
     Dates: start: 20220201
  8. LANSOPRAZOLE [Concomitant]
     Active Substance: LANSOPRAZOLE
     Indication: Gastrooesophageal reflux disease
     Route: 048
     Dates: start: 20220201
  9. METHYLPREDNISOLONE [Concomitant]
     Active Substance: METHYLPREDNISOLONE
     Route: 042
     Dates: start: 20220718, end: 20220718
  10. ACETAMINOPHEN [Concomitant]
     Active Substance: ACETAMINOPHEN
     Route: 042
     Dates: start: 20220718, end: 20220718
  11. POLARAMINE [Concomitant]
     Active Substance: DEXCHLORPHENIRAMINE MALEATE
     Route: 042
     Dates: start: 20220718, end: 20220718
  12. OXYGEN [Concomitant]
     Active Substance: OXYGEN
     Indication: Pneumonia bacterial
     Dosage: 50 L/MIN
     Route: 002
     Dates: start: 20220816, end: 20220817
  13. CANCIDAS [Concomitant]
     Active Substance: CASPOFUNGIN ACETATE
     Indication: Fungaemia
     Route: 042
     Dates: start: 20220903, end: 20220906
  14. PROSTIGMINE [Concomitant]
     Indication: Ileus
     Route: 042
     Dates: start: 20220817, end: 20220906
  15. FRANGULA ALNUS BARK\HERBALS\KARAYA GUM [Concomitant]
     Active Substance: FRANGULA ALNUS BARK\HERBALS\KARAYA GUM
     Indication: Ileus
     Route: 054
     Dates: start: 20220817, end: 20220906
  16. METFORMIN\VILDAGLIPTIN [Concomitant]
     Active Substance: METFORMIN\VILDAGLIPTIN
     Indication: Diabetes mellitus
     Route: 048
  17. DOBUTAMINE [Concomitant]
     Active Substance: DOBUTAMINE HYDROCHLORIDE
     Indication: Cardiac failure
     Route: 042
     Dates: start: 20220817, end: 20220829

REACTIONS (2)
  - Pleurisy [Fatal]
  - Renal failure [Not Recovered/Not Resolved]

NARRATIVE: CASE EVENT DATE: 20220815
